FAERS Safety Report 20823127 (Version 1)
Quarter: 2022Q2

REPORT INFORMATION
  Report Type: Spontaneous
  Country: GB (occurrence: GB)
  Receive Date: 20220513
  Receipt Date: 20220513
  Transmission Date: 20220720
  Serious: Yes (Other)
  Sender: FDA-Public Use
  Company Number: GB-CIPLA LTD.-2021GB03440

PATIENT

DRUGS (6)
  1. ABACAVIR\LAMIVUDINE [Suspect]
     Active Substance: ABACAVIR\LAMIVUDINE
     Indication: HIV infection
     Dosage: UNK, 1 DOSAGE FORM DAILY
     Route: 048
     Dates: start: 20200601, end: 20200801
  2. RITONAVIR [Suspect]
     Active Substance: RITONAVIR
     Indication: HIV infection
     Dosage: UNK, 1 DOSAGE FORM DAILY
     Route: 048
     Dates: start: 20200601, end: 20200801
  3. DESCOVY [Suspect]
     Active Substance: EMTRICITABINE\TENOFOVIR ALAFENAMIDE FUMARATE
     Indication: HIV infection
     Dosage: UNK, 1 DOSAGE FORM DAILY
     Route: 048
     Dates: end: 20200601
  4. REYATAZ [Suspect]
     Active Substance: ATAZANAVIR SULFATE
     Indication: HIV infection
     Dosage: UNK, 1 DOSAGE FORM DAILY
     Route: 048
     Dates: start: 20200601, end: 20200801
  5. TRUVADA [Suspect]
     Active Substance: EMTRICITABINE\TENOFOVIR DISOPROXIL FUMARATE
     Indication: HIV infection
     Dosage: UNK, 1 DOSAGE FORM DAILY
     Route: 048
     Dates: start: 20200801
  6. ISENTRESS [Suspect]
     Active Substance: RALTEGRAVIR POTASSIUM
     Indication: HIV infection
     Dosage: UNK, 1 DOSAGE FORM DAILY
     Route: 048
     Dates: start: 20200801

REACTIONS (2)
  - Premature labour [Unknown]
  - Exposure during pregnancy [Unknown]
